FAERS Safety Report 7329654-7 (Version None)
Quarter: 2011Q1

REPORT INFORMATION
  Report Type: 
  Country: None (occurrence: None)
  Receive Date: 20110303
  Receipt Date: 20110228
  Transmission Date: 20110831
  Serious: Yes (Other)
  Sender: FDA-Public Use
  Company Number: EE-PFIZER INC-2011036148

PATIENT
  Age: 75 Year
  Sex: Female
  Weight: 79 kg

DRUGS (15)
  1. NEURONTIN [Suspect]
     Indication: DIABETIC NEUROPATHY
     Dosage: 300 MG, 1X/DAY
     Route: 048
     Dates: start: 20110124, end: 20110211
  2. ATROVENT [Concomitant]
     Dosage: 3 DOSES THREE TIMES A DAY
  3. LUSOPRESS [Concomitant]
     Dosage: 20 MG, 2X/DAY
  4. ENALAPRIL [Concomitant]
     Dosage: 10 MG, 2X/DAY
  5. ARANESP [Concomitant]
     Dosage: UNK
  6. ROCALTROL [Concomitant]
     Dosage: 0.25 UG, 1X/DAY
  7. SYMBICORT [Concomitant]
     Dosage: 160/4.5 MCG 2 DOSES 2XDAY
  8. CONTROLOC [Concomitant]
     Dosage: 20 MG, 1X/DAY
     Dates: start: 20100101
  9. TEOTARD [Concomitant]
     Dosage: 200 MG, 2X/DAY
  10. CARVEDILOL [Concomitant]
     Dosage: 3.125 MG, 1X/DAY
  11. CALCIGRAN FORTE [Concomitant]
     Dosage: UNK
  12. MICARDIS [Concomitant]
     Dosage: 80 MG, 1X/DAY
  13. CITALOPRAM [Concomitant]
     Dosage: 20 MG, 1X/DAY
  14. AMITRIPTYLINE [Concomitant]
     Dosage: 25 MG, 1X/DAY
  15. TORASEMID [Concomitant]
     Dosage: 50 MG, ALTERNATE DAY

REACTIONS (4)
  - MUSCULAR WEAKNESS [None]
  - BLOOD CREATINE INCREASED [None]
  - RED BLOOD CELL COUNT DECREASED [None]
  - HAEMOGLOBIN DECREASED [None]
